FAERS Safety Report 10437806 (Version 1)
Quarter: 2014Q3

REPORT INFORMATION
  Report Type: Spontaneous
  Country: US (occurrence: US)
  Receive Date: 20140908
  Receipt Date: 20140908
  Transmission Date: 20150326
  Serious: No
  Sender: FDA-Public Use
  Company Number: US-BRISTOL-MYERS SQUIBB COMPANY-20482253

PATIENT
  Age: 53 Year
  Sex: Male
  Weight: 146.93 kg

DRUGS (15)
  1. ABILIFY [Suspect]
     Active Substance: ARIPIPRAZOLE
     Indication: BIPOLAR DISORDER
     Dosage: INCREASED TO 15MG UPTO 1.5YEARS
     Dates: start: 2008, end: 20140205
  2. LEVOTHYROXINE [Concomitant]
     Active Substance: LEVOTHYROXINE
  3. LAMICTAL [Concomitant]
     Active Substance: LAMOTRIGINE
     Dosage: QPM
  4. VENLAFAXINE HCL [Concomitant]
     Active Substance: VENLAFAXINE HYDROCHLORIDE
     Dosage: VENLAFAXINE ER TOTAL DOSE:450 MG
  5. ZETIA [Concomitant]
     Active Substance: EZETIMIBE
  6. BABY ASPIRIN [Concomitant]
     Active Substance: ASPIRIN
  7. HCTZ [Concomitant]
     Active Substance: HYDROCHLOROTHIAZIDE
     Indication: BLOOD PRESSURE
  8. CLONAZEPAM. [Concomitant]
     Active Substance: CLONAZEPAM
  9. TRAZODONE HYDROCHLORIDE. [Concomitant]
     Active Substance: TRAZODONE HYDROCHLORIDE
     Dosage: QPM
  10. LOSARTAN [Concomitant]
     Active Substance: LOSARTAN
  11. NOVOLOG [Concomitant]
     Active Substance: INSULIN ASPART
  12. SIMVASTATIN. [Concomitant]
     Active Substance: SIMVASTATIN
     Dosage: QPM
  13. ABILIFY [Suspect]
     Active Substance: ARIPIPRAZOLE
     Indication: ANXIETY
     Dosage: INCREASED TO 15MG UPTO 1.5YEARS
     Dates: start: 2008, end: 20140205
  14. ABILIFY [Suspect]
     Active Substance: ARIPIPRAZOLE
     Indication: DEPRESSION
     Dosage: INCREASED TO 15MG UPTO 1.5YEARS
     Dates: start: 2008, end: 20140205
  15. BYETTA [Concomitant]
     Active Substance: EXENATIDE
     Indication: TYPE 2 DIABETES MELLITUS
     Dates: start: 2009

REACTIONS (2)
  - Myalgia [Unknown]
  - Blood creatine phosphokinase increased [Unknown]

NARRATIVE: CASE EVENT DATE: 2014
